FAERS Safety Report 7867748 (Version 3)
Quarter: 2014Q4

REPORT INFORMATION
  Report Type: Spontaneous
  Country: BR (occurrence: BR)
  Receive Date: 20110323
  Receipt Date: 20141110
  Transmission Date: 20150529
  Serious: Yes (Other)
  Sender: FDA-Public Use
  Company Number: BR-SANOFI-AVENTIS-2011SA014989

PATIENT
  Age: 53 Year
  Sex: Male
  Weight: 72 kg

DRUGS (3)
  1. CLIKSTAR [Concomitant]
     Active Substance: CLIKSTAR
     Indication: DEVICE THERAPY
  2. LANTUS [Suspect]
     Active Substance: INSULIN GLARGINE
     Indication: TYPE 2 DIABETES MELLITUS
     Route: 058
     Dates: start: 2009
  3. ACARBOSE. [Concomitant]
     Active Substance: ACARBOSE
     Dosage: 1 TAB AFTER LUNCH AND 1 TAB AFTER DINNER
     Route: 048

REACTIONS (3)
  - Condition aggravated [Unknown]
  - Visual acuity reduced [Unknown]
  - Eye disorder [Not Recovered/Not Resolved]
